FAERS Safety Report 10312689 (Version 1)
Quarter: 2014Q3

REPORT INFORMATION
  Report Type: Spontaneous
  Country: VE (occurrence: VE)
  Receive Date: 20140718
  Receipt Date: 20140718
  Transmission Date: 20150326
  Serious: Yes (Other)
  Sender: FDA-Public Use
  Company Number: PHHY2014VE086634

PATIENT
  Age: 55 Year
  Sex: Female

DRUGS (1)
  1. ONBREZ [Suspect]
     Active Substance: INDACATEROL
     Indication: ASTHMA
     Dosage: 150 UG, DAILY
     Route: 055
     Dates: start: 201306

REACTIONS (6)
  - Gait disturbance [Unknown]
  - Fall [Unknown]
  - Foot fracture [Recovered/Resolved]
  - Ligament rupture [Recovered/Resolved]
  - Exostosis [Unknown]
  - Immune system disorder [Unknown]

NARRATIVE: CASE EVENT DATE: 20140512
